FAERS Safety Report 7465182-6 (Version None)
Quarter: 2011Q2

REPORT INFORMATION
  Report Type: 
  Country: None (occurrence: None)
  Receive Date: 20110509
  Receipt Date: 20110504
  Transmission Date: 20111010
  Serious: Yes (Hospitalization, Other)
  Sender: FDA-Public Use
  Company Number: DE-PFIZER INC-2011032177

PATIENT
  Age: 55 Year
  Sex: Female

DRUGS (8)
  1. VENLAFAXINE [Suspect]
     Indication: DEPRESSION
     Dosage: 37.5 MG, 1X/DAY
     Dates: start: 20110215
  2. TAVOR [Concomitant]
     Dosage: UNK
  3. DOXEPIN [Suspect]
     Indication: DEPRESSION
     Dosage: UNK
  4. TRAMADOL [Concomitant]
  5. VENLAFAXINE [Suspect]
     Indication: ANXIETY
  6. MORPHINE [Suspect]
     Dosage: UNK
     Dates: end: 20090601
  7. DOXEPIN [Suspect]
     Indication: ANXIETY
  8. PASPERTIN [Concomitant]
     Indication: NAUSEA
     Dosage: UNK
     Dates: start: 19610101

REACTIONS (10)
  - HALLUCINATION [None]
  - CONFUSIONAL STATE [None]
  - RESTLESSNESS [None]
  - DYSARTHRIA [None]
  - DRUG EFFECT DECREASED [None]
  - DYSKINESIA [None]
  - SPEECH DISORDER [None]
  - TREMOR [None]
  - DRUG WITHDRAWAL SYNDROME [None]
  - HYPERHIDROSIS [None]
